FAERS Safety Report 23839938 (Version 1)
Quarter: 2024Q2

REPORT INFORMATION
  Report Type: Spontaneous
  Country: US (occurrence: US)
  Receive Date: 20240510
  Receipt Date: 20240510
  Transmission Date: 20240715
  Serious: No
  Sender: FDA-Public Use
  Company Number: US-TAKEDA-2024TUS046106

PATIENT
  Sex: Female
  Weight: 52 kg

DRUGS (1)
  1. MOTEGRITY [Suspect]
     Active Substance: PRUCALOPRIDE SUCCINATE
     Indication: Impaired gastric emptying
     Dosage: 2 MILLIGRAM
     Route: 065
     Dates: start: 202301

REACTIONS (3)
  - Off label use [Unknown]
  - Product use issue [Unknown]
  - No adverse event [Unknown]
